FAERS Safety Report 8233952-2 (Version None)
Quarter: 2012Q1

REPORT INFORMATION
  Report Type: 
  Country: None (occurrence: None)
  Receive Date: 20120326
  Receipt Date: 20111026
  Transmission Date: 20120608
  Serious: No
  Sender: FDA-Public Use
  Company Number: US-BRISTOL-MYERS SQUIBB COMPANY-16166001

PATIENT
  Sex: Female

DRUGS (1)
  1. NYSTATIN [Suspect]
     Indication: ORAL FUNGAL INFECTION

REACTIONS (1)
  - DISCOMFORT [None]
